FAERS Safety Report 4549654-X (Version None)
Quarter: 2005Q1

REPORT INFORMATION
  Report Type: 
  Country: None (occurrence: None)
  Receive Date: 20050111
  Receipt Date: 20041230
  Transmission Date: 20050727
  Serious: Yes (Hospitalization, Other)
  Sender: FDA-Public Use
  Company Number: FR-GLAXOSMITHKLINE-B0363111A

PATIENT
  Age: 71 Year
  Sex: Male
  Weight: 100 kg

DRUGS (6)
  1. DEROXAT [Suspect]
     Dosage: 20MG PER DAY
     Route: 048
  2. THALIDOMIDE [Suspect]
     Dosage: 100MG PER DAY
     Route: 048
     Dates: start: 20040729, end: 20041009
  3. GLUCOPHAGE [Suspect]
     Dosage: 1000MG PER DAY
     Route: 048
  4. DAONIL [Suspect]
     Dosage: 5MG PER DAY
     Route: 048
  5. CORDARONE [Suspect]
     Dosage: 200MG PER DAY
     Route: 048
  6. GLUCOR [Suspect]
     Dosage: 100MG PER DAY
     Route: 048

REACTIONS (4)
  - APLASIA [None]
  - LEUKOPENIA [None]
  - NEUTROPENIA [None]
  - PYREXIA [None]
